FAERS Safety Report 5745709-2 (Version None)
Quarter: 2008Q2

REPORT INFORMATION
  Report Type: 
  Country: None (occurrence: None)
  Receive Date: 20080521
  Receipt Date: 20080516
  Transmission Date: 20081010
  Serious: Yes (Other)
  Sender: FDA-Public Use
  Company Number: PHBS2007NO13302

PATIENT
  Age: 17 Year
  Sex: Female

DRUGS (8)
  1. TEGRETOL [Suspect]
     Indication: EPILEPSY
     Dosage: UNK, UNK
     Route: 065
     Dates: start: 19870101, end: 20000101
  2. PREDNISOLONE [Concomitant]
     Dosage: 5-15 MG DAILY
     Dates: end: 20010101
  3. METHOTREXATE [Concomitant]
     Dates: start: 20010101
  4. NAPROXEN [Concomitant]
     Dosage: UNK, PRN
     Dates: start: 19900101
  5. PHENYTOIN [Concomitant]
     Dates: start: 19930201
  6. ERGENYL [Concomitant]
  7. SABRILEX [Concomitant]
     Dates: start: 19950101
  8. SABRILEX [Concomitant]
     Dates: start: 19950101

REACTIONS (9)
  - ABORTION SPONTANEOUS [None]
  - ANTINUCLEAR ANTIBODY POSITIVE [None]
  - ARTHRITIS [None]
  - CONVULSION [None]
  - DOUBLE STRANDED DNA ANTIBODY [None]
  - DRUG EXPOSURE DURING PREGNANCY [None]
  - MUSCULOSKELETAL DISCOMFORT [None]
  - SYSTEMIC LUPUS ERYTHEMATOSUS [None]
  - WHITE BLOOD CELL COUNT DECREASED [None]
